FAERS Safety Report 19097925 (Version 1)
Quarter: 2021Q2

REPORT INFORMATION
  Report Type: Spontaneous
  Country: CN (occurrence: CN)
  Receive Date: 20210406
  Receipt Date: 20210406
  Transmission Date: 20210717
  Serious: Yes (Hospitalization, Other)
  Sender: FDA-Public Use
  Company Number: CN-009507513-2104CHN000612

PATIENT
  Age: 44 Year
  Sex: Male
  Weight: 91 kg

DRUGS (3)
  1. SODIUM CHLORIDE. [Concomitant]
     Active Substance: SODIUM CHLORIDE
     Indication: MEDICATION DILUTION
     Dosage: 100 MILLILITER, Q3W
     Route: 041
     Dates: start: 20210222, end: 20210222
  2. KEYTRUDA [Suspect]
     Active Substance: PEMBROLIZUMAB
     Indication: HEPATIC CANCER
     Dosage: 200 MILLIGRAM, Q3W
     Route: 041
     Dates: start: 20201212, end: 20210222
  3. LENVATINIB MESYLATE [Suspect]
     Active Substance: LENVATINIB MESYLATE
     Indication: HEPATIC CANCER
     Dosage: 12 MILLIGRAM, QD
     Route: 048
     Dates: start: 20201120, end: 20210330

REACTIONS (8)
  - Oedema peripheral [Recovering/Resolving]
  - Gingivitis [Recovering/Resolving]
  - Pain [Recovering/Resolving]
  - Hypothyroidism [Recovering/Resolving]
  - Hypophysitis [Recovering/Resolving]
  - Skin lesion [Recovering/Resolving]
  - Asthenia [Recovering/Resolving]
  - Inappropriate schedule of product administration [Unknown]

NARRATIVE: CASE EVENT DATE: 20210316
